FAERS Safety Report 19452317 (Version 4)
Quarter: 2021Q4

REPORT INFORMATION
  Report Type: Spontaneous
  Country: JP (occurrence: JP)
  Receive Date: 20210623
  Receipt Date: 20211102
  Transmission Date: 20220303
  Serious: Yes (Death, Other)
  Sender: FDA-Public Use
  Company Number: JP-ASTELLAS-2021JP011977

PATIENT
  Age: 8 Decade
  Sex: Male

DRUGS (4)
  1. XOSPATA [Suspect]
     Active Substance: GILTERITINIB
     Indication: Acute myeloid leukaemia recurrent
     Route: 048
     Dates: start: 20210330, end: 20210430
  2. XOSPATA [Suspect]
     Active Substance: GILTERITINIB
     Route: 048
     Dates: start: 20210507, end: 20210509
  3. VIDAZA [Concomitant]
     Active Substance: AZACITIDINE
     Indication: Acute myeloid leukaemia
     Dosage: 130 MG, MONTHLY 7 DAYS
     Route: 065
     Dates: start: 202009, end: 202011
  4. VIDAZA [Concomitant]
     Active Substance: AZACITIDINE
     Dosage: 130 MG, UNKNOWN FREQ., 7 DAYS
     Route: 065
     Dates: start: 20210308

REACTIONS (3)
  - Interstitial lung disease [Fatal]
  - Prostatitis [Recovered/Resolved]
  - Myositis [Recovered/Resolved]

NARRATIVE: CASE EVENT DATE: 20210412
